FAERS Safety Report 5929679-X (Version None)
Quarter: 2008Q4

REPORT INFORMATION
  Report Type: 
  Country: None (occurrence: None)
  Receive Date: 20081024
  Receipt Date: 20081014
  Transmission Date: 20090506
  Serious: Yes (Life-Threatening, Hospitalization)
  Sender: FDA-Public Use
  Company Number: FR-SANOFI-SYNTHELABO-A02200803055

PATIENT
  Age: 25 Year
  Sex: Female

DRUGS (3)
  1. FOLINIC ACID [Concomitant]
     Route: 065
  2. FLUOROURACIL [Concomitant]
     Route: 041
  3. ELOXATIN [Suspect]
     Indication: COLON CANCER METASTATIC
     Route: 041
     Dates: start: 20080610, end: 20080610

REACTIONS (6)
  - CHILLS [None]
  - HAEMOLYSIS [None]
  - HYPERBILIRUBINAEMIA [None]
  - PYREXIA [None]
  - SHOCK [None]
  - THROMBOCYTOPENIA [None]
